FAERS Safety Report 5209537-9 (Version None)
Quarter: 2006Q4

REPORT INFORMATION
  Report Type: 
  Country: None (occurrence: None)
  Receive Date: 20061101
  Receipt Date: 20060821
  Transmission Date: 20070319
  Serious: No
  Sender: FDA-Public Use
  Company Number: 2006PV019903

PATIENT
  Age: 53 Year
  Sex: Female
  Weight: 145.151 kg

DRUGS (4)
  1. SYMLIN [Suspect]
     Indication: DIABETES MELLITUS
     Dosage: 30 MCG;TID;SC
     Route: 058
     Dates: start: 20060820
  2. NOVOLOG [Concomitant]
  3. LANTUS [Concomitant]
  4. METFORMIN HCL [Concomitant]

REACTIONS (2)
  - INJECTION SITE ERYTHEMA [None]
  - URTICARIA [None]
